FAERS Safety Report 21371095 (Version 2)
Quarter: 2022Q4

REPORT INFORMATION
  Report Type: Spontaneous
  Country: US (occurrence: US)
  Receive Date: 20220923
  Receipt Date: 20221003
  Transmission Date: 20230112
  Serious: Yes (Hospitalization, Other)
  Sender: FDA-Public Use
  Company Number: US-PPDUS-2022ZX001004

PATIENT
  Sex: Male
  Weight: 109.1 kg

DRUGS (8)
  1. FINTEPLA [Suspect]
     Active Substance: FENFLURAMINE
     Indication: Seizure
     Dosage: 2 MILLILITER, 2X/DAY (BID)
     Route: 048
     Dates: start: 20220720, end: 20220727
  2. FINTEPLA [Suspect]
     Active Substance: FENFLURAMINE
     Dosage: 2.5 MILLILITER, 2X/DAY (BID)
     Route: 048
     Dates: start: 20220729, end: 20220803
  3. FINTEPLA [Suspect]
     Active Substance: FENFLURAMINE
     Dosage: 2 MILLILITER, 2X/DAY (BID)
     Route: 048
     Dates: start: 20220803, end: 20220804
  4. FINTEPLA [Suspect]
     Active Substance: FENFLURAMINE
     Dosage: 1 MILLILITER, 2X/DAY (BID)
     Route: 048
     Dates: start: 20220804, end: 20220808
  5. DEPAKOTE [Concomitant]
     Active Substance: DIVALPROEX SODIUM
     Indication: Seizure
  6. FELBAMATE [Concomitant]
     Active Substance: FELBAMATE
     Indication: Seizure
  7. CLOBAZAM [Concomitant]
     Active Substance: CLOBAZAM
     Indication: Seizure
  8. RISPERIDONE [Concomitant]
     Active Substance: RISPERIDONE
     Indication: Agitation

REACTIONS (6)
  - Head injury [Recovered/Resolved]
  - Fall [Recovered/Resolved]
  - Cerebral haematoma [Unknown]
  - Sedation [Recovered/Resolved]
  - Fatigue [Unknown]
  - Nystagmus [Unknown]

NARRATIVE: CASE EVENT DATE: 20220101
